FAERS Safety Report 7709297-3 (Version None)
Quarter: 2011Q3

REPORT INFORMATION
  Report Type: 
  Country: None (occurrence: None)
  Receive Date: 20110825
  Receipt Date: 20110524
  Transmission Date: 20111222
  Serious: No
  Sender: FDA-Public Use
  Company Number: US-TYCO HEALTHCARE/MALLINCKRODT-T201101105

PATIENT

DRUGS (1)
  1. FENTANYL-100 [Suspect]
     Dosage: UNK
     Route: 062
     Dates: start: 20110517

REACTIONS (2)
  - APPLICATION SITE PRURITUS [None]
  - PRURITUS [None]
